FAERS Safety Report 20445100 (Version 3)
Quarter: 2022Q1

REPORT INFORMATION
  Report Type: Spontaneous
  Country: US (occurrence: US)
  Receive Date: 20220208
  Receipt Date: 20220218
  Transmission Date: 20220423
  Serious: Yes (Hospitalization, Other)
  Sender: FDA-Public Use
  Company Number: US-ELI_LILLY_AND_COMPANY-US202202001698

PATIENT
  Sex: Female

DRUGS (7)
  1. HUMALOG [Suspect]
     Active Substance: INSULIN LISPRO
     Indication: Product used for unknown indication
     Dosage: UNK UNK, UNKNOWN
     Route: 065
  2. BASAGLAR [Suspect]
     Active Substance: INSULIN GLARGINE
     Indication: Product used for unknown indication
     Dosage: 35 U, BID
     Route: 058
  3. BASAGLAR [Suspect]
     Active Substance: INSULIN GLARGINE
     Dosage: 35 U, BID
     Route: 058
  4. BASAGLAR [Suspect]
     Active Substance: INSULIN GLARGINE
     Dosage: 35 U, BID
     Route: 058
  5. HUMALOG MIX75/25 [Suspect]
     Active Substance: INSULIN LISPRO
     Indication: Product used for unknown indication
     Dosage: UNK UNK, UNKNOWN
     Route: 065
  6. HUMULIN R U-500 [Suspect]
     Active Substance: INSULIN HUMAN
     Indication: Product used for unknown indication
     Dosage: MORINING AND EVENING
     Route: 065
     Dates: start: 2018
  7. NOVOLOG [Concomitant]
     Active Substance: INSULIN ASPART
     Indication: Product used for unknown indication
     Dosage: UNK, UNKNOWN
     Route: 065

REACTIONS (14)
  - COVID-19 [Recovering/Resolving]
  - Myocardial infarction [Recovering/Resolving]
  - Cardiac disorder [Recovering/Resolving]
  - Lung disorder [Recovering/Resolving]
  - Pneumonia [Recovered/Resolved]
  - Chronic kidney disease [Recovered/Resolved]
  - Blood glucose decreased [Recovered/Resolved]
  - Arteriosclerosis [Not Recovered/Not Resolved]
  - Blood glucose increased [Recovered/Resolved]
  - Limb discomfort [Recovering/Resolving]
  - Memory impairment [Not Recovered/Not Resolved]
  - Hypoacusis [Unknown]
  - Anaemia [Unknown]
  - Renal disorder [Recovering/Resolving]

NARRATIVE: CASE EVENT DATE: 20090101
